FAERS Safety Report 6652251-3 (Version None)
Quarter: 2010Q1

REPORT INFORMATION
  Report Type: 
  Country: None (occurrence: None)
  Receive Date: 20100325
  Receipt Date: 20100315
  Transmission Date: 20100710
  Serious: Yes (Life-Threatening, Hospitalization)
  Sender: FDA-Public Use
  Company Number: DE-ABBOTT-10P-062-0632676-00

PATIENT
  Sex: Female
  Weight: 52.8 kg

DRUGS (14)
  1. HUMIRA [Suspect]
     Indication: RHEUMATOID ARTHRITIS
     Route: 058
     Dates: start: 20051201, end: 20090601
  2. PREDNISOLONE [Concomitant]
     Indication: RHEUMATOID ARTHRITIS
     Dosage: 25 MG DAILY;   SINCE 14-JUL-2009 5 MG DAILY
     Route: 048
  3. PREDNISOLONE [Concomitant]
  4. BONIVA [Concomitant]
     Indication: OSTEOPOROSIS
     Route: 058
  5. VOLTAREN [Concomitant]
     Indication: RHEUMATOID ARTHRITIS
  6. ACETAMINOPHEN [Concomitant]
     Indication: PAIN
  7. OMEPRAZOLE [Concomitant]
     Indication: PROPHYLAXIS AGAINST GASTROINTESTINAL ULCER
     Dosage: UNK.
     Dates: end: 20090101
  8. PANTOPRAZOLE SODIUM [Concomitant]
     Indication: PROPHYLAXIS AGAINST GASTROINTESTINAL ULCER
     Route: 048
  9. CALCIVIT [Concomitant]
     Indication: OSTEOPOROSIS
  10. NOVAMINSULFON [Concomitant]
     Indication: DRUG USE FOR UNKNOWN INDICATION
     Dosage: 6 X 40 DROPS
     Route: 048
  11. PALLADONE [Concomitant]
     Indication: DRUG USE FOR UNKNOWN INDICATION
  12. LYRICA [Concomitant]
     Indication: DRUG USE FOR UNKNOWN INDICATION
  13. CYANOCOBALAMIN [Concomitant]
     Indication: DRUG USE FOR UNKNOWN INDICATION
     Dosage: 1 AMPULE PER WEEK
  14. RIOPAN-GEL [Concomitant]
     Indication: PROPHYLAXIS AGAINST GASTROINTESTINAL ULCER
     Route: 048

REACTIONS (8)
  - ACTIVITIES OF DAILY LIVING IMPAIRED [None]
  - LYMPHADENOPATHY [None]
  - MOBILITY DECREASED [None]
  - MUSCULAR WEAKNESS [None]
  - PARESIS [None]
  - PERICARDIAL EFFUSION [None]
  - SPONDYLITIS [None]
  - WEIGHT DECREASED [None]
